FAERS Safety Report 10755788 (Version 1)
Quarter: 2015Q1

REPORT INFORMATION
  Report Type: Spontaneous
  Country: US (occurrence: None)
  Receive Date: 20150123
  Receipt Date: 20150123
  Transmission Date: 20150721
  Serious: No
  Sender: FDA-Public Use
  Company Number: 2014TUS009869

PATIENT
  Age: 36 Year
  Sex: Female
  Weight: 104.3 kg

DRUGS (1)
  1. ENTYVIO [Suspect]
     Active Substance: VEDOLIZUMAB
     Indication: PRODUCT USED FOR UNKNOWN INDICATION
     Dosage: 300 MG, FIRST DOSE, 4.8 ML STERILE WATER IN 250 ML NS/30 MINS
     Route: 042
     Dates: start: 20140925

REACTIONS (2)
  - Exposure during pregnancy [None]
  - No adverse event [None]
